FAERS Safety Report 5731488-1 (Version None)
Quarter: 2008Q2

REPORT INFORMATION
  Report Type: 
  Country: None (occurrence: None)
  Receive Date: 20080506
  Receipt Date: 20080506
  Transmission Date: 20081010
  Serious: Yes (Other)
  Sender: FDA-Public Use
  Company Number: None

PATIENT
  Age: 58 Year
  Sex: Female
  Weight: 61.2356 kg

DRUGS (1)
  1. FOSAMAX [Suspect]
     Dosage: 70MG 1/WEEK PO
     Route: 048
     Dates: start: 20021119, end: 20080304

REACTIONS (2)
  - OSTEONECROSIS [None]
  - PALATAL DISORDER [None]
